FAERS Safety Report 17184958 (Version 3)
Quarter: 2020Q1

REPORT INFORMATION
  Report Type: Spontaneous
  Country: GR (occurrence: GR)
  Receive Date: 20191220
  Receipt Date: 20200203
  Transmission Date: 20200409
  Serious: Yes (Other)
  Sender: FDA-Public Use
  Company Number: GR-009507513-1912GRC007849

PATIENT
  Age: 67 Year
  Sex: Male

DRUGS (3)
  1. KEYTRUDA [Suspect]
     Active Substance: PEMBROLIZUMAB
     Indication: RENAL CANCER
     Dosage: UNK, CYCLICAL
     Dates: start: 201909
  2. SELENIUM (UNSPECIFIED) [Concomitant]
     Active Substance: SELENIUM
     Dosage: UNK
  3. INLYTA [Suspect]
     Active Substance: AXITINIB
     Indication: RENAL CANCER
     Dosage: UNK, CYCLICAL
     Dates: start: 201909

REACTIONS (5)
  - Product use in unapproved indication [Unknown]
  - Hyperthyroidism [Recovered/Resolved]
  - Dysphonia [Recovered/Resolved]
  - Diplopia [Recovered/Resolved]
  - Off label use [Unknown]

NARRATIVE: CASE EVENT DATE: 2019
